FAERS Safety Report 11810110 (Version 1)
Quarter: 2015Q4

REPORT INFORMATION
  Report Type: Spontaneous
  Country: US (occurrence: None)
  Receive Date: 20151207
  Receipt Date: 20151207
  Transmission Date: 20160305
  Serious: Yes (Other)
  Sender: FDA-Public Use
  Company Number: None

PATIENT
  Age: 44 Year
  Sex: Female
  Weight: 73.48 kg

DRUGS (1)
  1. ORTHO-NOVUM 777 [Suspect]
     Active Substance: ETHINYL ESTRADIOL\NORETHINDRONE
     Dosage: 1 PILL
     Route: 048
     Dates: start: 19980101, end: 20030101

REACTIONS (3)
  - Progesterone receptor assay positive [None]
  - Oestrogen receptor assay positive [None]
  - Invasive ductal breast carcinoma [None]

NARRATIVE: CASE EVENT DATE: 20151019
